FAERS Safety Report 21438453 (Version 1)
Quarter: 2022Q4

REPORT INFORMATION
  Report Type: Spontaneous
  Country: PL (occurrence: PL)
  Receive Date: 20221011
  Receipt Date: 20221011
  Transmission Date: 20230112
  Serious: Yes (Other)
  Sender: FDA-Public Use
  Company Number: PL-STRIDES ARCOLAB LIMITED-2022SP012875

PATIENT
  Age: 35 Year
  Sex: Male

DRUGS (14)
  1. DEXAMETHASONE [Suspect]
     Active Substance: DEXAMETHASONE
     Indication: Haemophagocytic lymphohistiocytosis
     Dosage: UNK, CYCLICAL; HLH 2014 PROTOCOL
     Route: 065
     Dates: start: 2019
  2. ETOPOSIDE [Suspect]
     Active Substance: ETOPOSIDE
     Indication: Peripheral T-cell lymphoma unspecified
     Dosage: UNK, CYCLICAL; CHEOP REGIMEN
     Route: 065
     Dates: start: 2019
  3. ETOPOSIDE [Suspect]
     Active Substance: ETOPOSIDE
     Dosage: UNK, CYCLICAL; HDT BEAM REGIMEN
     Route: 065
     Dates: start: 201910
  4. PREDNISOLONE [Suspect]
     Active Substance: PREDNISOLONE
     Indication: Peripheral T-cell lymphoma unspecified
     Dosage: UNK, CYCLICAL; CHOEP REGIMEN
     Route: 065
     Dates: start: 2019
  5. CYCLOPHOSPHAMIDE [Suspect]
     Active Substance: CYCLOPHOSPHAMIDE
     Indication: Peripheral T-cell lymphoma unspecified
     Dosage: UNK, CYCLICAL; CHOEP
     Route: 065
     Dates: start: 2019
  6. DOXORUBICIN [Suspect]
     Active Substance: DOXORUBICIN
     Indication: Peripheral T-cell lymphoma unspecified
     Dosage: UNK, CYCLICAL; CHOEP REGIMEN
     Route: 065
     Dates: start: 2019
  7. VINCRISTINE [Suspect]
     Active Substance: VINCRISTINE
     Indication: Peripheral T-cell lymphoma unspecified
     Dosage: UNK, CYCLICAL; CHOEP REGIMEN
     Route: 065
     Dates: start: 2019
  8. CYCLOSPORINE [Suspect]
     Active Substance: CYCLOSPORINE
     Indication: Haemophagocytic lymphohistiocytosis
     Dosage: UNK, CYCLICAL
     Route: 065
     Dates: start: 2019
  9. BUSULFAN [Suspect]
     Active Substance: BUSULFAN
     Indication: Peripheral T-cell lymphoma unspecified
     Dosage: UNK; HDT BEAM REGIMEN
     Route: 065
     Dates: start: 201910
  10. BUSULFAN [Suspect]
     Active Substance: BUSULFAN
     Indication: Haemophagocytic lymphohistiocytosis
  11. CYTARABINE [Suspect]
     Active Substance: CYTARABINE
     Indication: Peripheral T-cell lymphoma unspecified
     Dosage: UNK; HDT BEAM REGIMEN
     Route: 065
     Dates: start: 201910
  12. CYTARABINE [Suspect]
     Active Substance: CYTARABINE
     Indication: Haemophagocytic lymphohistiocytosis
  13. MELPHALAN [Suspect]
     Active Substance: MELPHALAN
     Indication: Peripheral T-cell lymphoma unspecified
     Dosage: UNK; HDT BEAM REGIMEN
     Route: 065
     Dates: start: 201910
  14. MELPHALAN [Suspect]
     Active Substance: MELPHALAN
     Indication: Haemophagocytic lymphohistiocytosis

REACTIONS (9)
  - Pancytopenia [Recovered/Resolved]
  - Febrile neutropenia [Recovered/Resolved]
  - Drug-induced liver injury [Recovered/Resolved]
  - Lung abscess [Unknown]
  - Pneumonia [Recovered/Resolved]
  - Therapy partial responder [Unknown]
  - Skin infection [Recovered/Resolved]
  - Mucosal inflammation [Recovered/Resolved]
  - Off label use [Unknown]

NARRATIVE: CASE EVENT DATE: 20190101
